FAERS Safety Report 4735982-1 (Version None)
Quarter: 2005Q3

REPORT INFORMATION
  Report Type: 
  Country: None (occurrence: None)
  Receive Date: 20050805
  Receipt Date: 20050311
  Transmission Date: 20060218
  Serious: Yes (Hospitalization)
  Sender: FDA-Public Use
  Company Number: US-MERCK-0503USA02802

PATIENT
  Age: 63 Year
  Sex: Male
  Weight: 81 kg

DRUGS (13)
  1. VIOXX [Suspect]
     Indication: PAIN IN EXTREMITY
     Route: 048
     Dates: start: 20000623, end: 20000101
  2. VIOXX [Suspect]
     Route: 048
     Dates: start: 20000101, end: 20020624
  3. VIOXX [Suspect]
     Route: 048
     Dates: start: 20000623, end: 20000101
  4. VIOXX [Suspect]
     Route: 048
     Dates: start: 20000101, end: 20020624
  5. HYTRIN [Concomitant]
     Indication: URINARY TRACT INFECTION
     Route: 065
     Dates: start: 19950101
  6. VIAGRA [Concomitant]
     Route: 065
  7. INDOMETHACIN [Concomitant]
     Indication: GOUT
     Route: 065
  8. ASPIRIN [Concomitant]
     Route: 065
     Dates: start: 20000101, end: 20020101
  9. ASCORBIC ACID [Concomitant]
     Route: 065
  10. VITAMINS (UNSPECIFIED) [Concomitant]
     Route: 065
  11. VITAMIN E [Concomitant]
     Route: 065
  12. CALCIUM (UNSPECIFIED) [Concomitant]
     Route: 065
  13. SAW PALMETTO [Concomitant]
     Route: 065
     Dates: start: 19950101

REACTIONS (3)
  - BLOOD CHOLESTEROL INCREASED [None]
  - HERNIA [None]
  - MYOCARDIAL INFARCTION [None]
